FAERS Safety Report 6247150-5 (Version None)
Quarter: 2009Q2

REPORT INFORMATION
  Report Type: 
  Country: None (occurrence: None)
  Receive Date: 20090624
  Receipt Date: 20090624
  Transmission Date: 20091009
  Serious: No
  Sender: FDA-Public Use
  Company Number: None

PATIENT
  Sex: Male
  Weight: 87.6 kg

DRUGS (8)
  1. HEPARIN [Suspect]
     Indication: DEEP VEIN THROMBOSIS
     Dosage: 1500 UNITS/HR IV
     Route: 042
     Dates: start: 20090408, end: 20090413
  2. APAP TAB [Concomitant]
  3. AMLODIPINE [Concomitant]
  4. ASPIRIN [Concomitant]
  5. ATORVASTATIN CALCIUM [Concomitant]
  6. DOCUSATE [Concomitant]
  7. LANSOPRAZOLE [Concomitant]
  8. METOPROLOL [Concomitant]

REACTIONS (2)
  - ACTIVATED PARTIAL THROMBOPLASTIN TIME SHORTENED [None]
  - CEREBRAL HAEMORRHAGE [None]
